FAERS Safety Report 17550780 (Version 1)
Quarter: 2020Q1

REPORT INFORMATION
  Report Type: Report from Study
  Country: None (occurrence: US)
  Receive Date: 20200317
  Receipt Date: 20200317
  Transmission Date: 20200409
  Serious: Yes (Other)
  Sender: FDA-Public Use
  Company Number: US-ABBVIE-20K-163-3313859-00

PATIENT
  Sex: Female

DRUGS (1)
  1. HUMIRA [Suspect]
     Active Substance: ADALIMUMAB
     Indication: PSORIASIS
     Route: 058

REACTIONS (9)
  - Joint injury [Unknown]
  - Fibrosis [Unknown]
  - Psoriasis [Unknown]
  - Depression [Unknown]
  - Limb injury [Unknown]
  - Nerve compression [Unknown]
  - Exostosis [Unknown]
  - Asthma [Unknown]
  - Arthritis [Unknown]
